FAERS Safety Report 24205757 (Version 1)
Quarter: 2024Q3

REPORT INFORMATION
  Report Type: Report from Study
  Country: TW (occurrence: None)
  Receive Date: 20240813
  Receipt Date: 20240813
  Transmission Date: 20241016
  Serious: Yes (Hospitalization)
  Sender: ASTRAZENECA
  Company Number: 2024A181633

PATIENT
  Sex: Female

DRUGS (2)
  1. IMFINZI [Suspect]
     Active Substance: DURVALUMAB
     Indication: Hepatic cancer
     Dosage: 1500.0MG UNKNOWN
     Route: 041
     Dates: start: 20240718
  2. IMJUDO [Suspect]
     Active Substance: TREMELIMUMAB\TREMELIMUMAB-ACTL
     Indication: Hepatic cancer
     Dosage: 300.0MG ONCE/SINGLE ADMINISTRATION
     Route: 041
     Dates: start: 20240718

REACTIONS (4)
  - Rash [Unknown]
  - Oral disorder [Unknown]
  - Vaginal haemorrhage [Unknown]
  - Pyrexia [Unknown]
